FAERS Safety Report 8810180 (Version 1)
Quarter: 2012Q4

REPORT INFORMATION
  Report Type: 
  Country: US (occurrence: US)
  Receive Date: 20120926
  Receipt Date: 20120926
  Transmission Date: 20130627
  Serious: Yes (Other)
  Sender: FDA-Public Use
  Company Number: US-JNJFOC-20120908136

PATIENT
  Age: 62 Year
  Sex: Female

DRUGS (10)
  1. XARELTO [Suspect]
     Indication: CEREBROVASCULAR ACCIDENT PROPHYLAXIS
     Route: 048
     Dates: start: 201206, end: 201209
  2. XARELTO [Suspect]
     Indication: ATRIAL FIBRILLATION
     Route: 048
     Dates: start: 201206, end: 201209
  3. HYDROCHLOROTHIAZIDE [Concomitant]
  4. LIPITOR [Concomitant]
  5. LOSARTAN [Concomitant]
  6. METFORMIN [Concomitant]
  7. METOPROLOL [Concomitant]
  8. SINGULAIR [Concomitant]
  9. XOPENEX [Concomitant]
  10. MULTIVITAMINS [Concomitant]

REACTIONS (5)
  - Paraesthesia oral [Unknown]
  - Tongue disorder [Unknown]
  - Swollen tongue [Unknown]
  - Dysgeusia [Unknown]
  - Therapeutic procedure [Unknown]
